FAERS Safety Report 9218563 (Version 1)
Quarter: 2013Q2

REPORT INFORMATION
  Report Type: Report from Study
  Country: US (occurrence: US)
  Receive Date: 20130409
  Receipt Date: 20130409
  Transmission Date: 20140414
  Serious: Yes (Hospitalization)
  Sender: FDA-Public Use
  Company Number: US-009507513-1304USA002196

PATIENT
  Age: 58 Year
  Sex: Male

DRUGS (2)
  1. SINGULAIR [Suspect]
     Dosage: UNK
     Dates: start: 20081201, end: 20081225
  2. LISINOPRIL [Concomitant]

REACTIONS (1)
  - Drug-induced liver injury [Recovered/Resolved]
